FAERS Safety Report 4591278-2 (Version None)
Quarter: 2005Q1

REPORT INFORMATION
  Report Type: 
  Country: None (occurrence: None)
  Receive Date: 20050225
  Receipt Date: 20050215
  Transmission Date: 20050727
  Serious: Yes (Other)
  Sender: FDA-Public Use
  Company Number: PHBS2005NZ02397

PATIENT
  Sex: Female

DRUGS (2)
  1. GLEEVEC [Suspect]
     Route: 065
  2. TRAMADOL HCL [Suspect]
     Route: 065

REACTIONS (4)
  - AGGRESSION [None]
  - CONFUSIONAL STATE [None]
  - DRUG INTERACTION [None]
  - RESPIRATORY FAILURE [None]
